FAERS Safety Report 10691151 (Version 4)
Quarter: 2015Q1

REPORT INFORMATION
  Report Type: Spontaneous
  Country: BR (occurrence: BR)
  Receive Date: 20150105
  Receipt Date: 20150330
  Transmission Date: 20150720
  Serious: Yes (Other)
  Sender: FDA-Public Use
  Company Number: BR-PFIZER INC-2014361580

PATIENT
  Age: 58 Year
  Sex: Male

DRUGS (2)
  1. ATENOLOL. [Concomitant]
     Active Substance: ATENOLOL
     Dosage: UNK, 2.5 MG STRENGTH
     Dates: start: 2005, end: 201412
  2. CARDURAN XL [Suspect]
     Active Substance: DOXAZOSIN MESYLATE
     Dosage: 4 MG, DAILY
     Dates: start: 201310, end: 201412

REACTIONS (3)
  - Joint injury [Recovering/Resolving]
  - Drug ineffective [Recovering/Resolving]
  - Suspected counterfeit product [Recovering/Resolving]

NARRATIVE: CASE EVENT DATE: 201310
